FAERS Safety Report 6105654-X (Version None)
Quarter: 2009Q1

REPORT INFORMATION
  Report Type: 
  Country: None (occurrence: None)
  Receive Date: 20090306
  Receipt Date: 20090226
  Transmission Date: 20090719
  Serious: Yes (Other)
  Sender: FDA-Public Use
  Company Number: US-ELI_LILLY_AND_COMPANY-US200812005910

PATIENT
  Sex: Female

DRUGS (3)
  1. HUMALOG [Suspect]
  2. LEVOTHYROXINE SODIUM [Concomitant]
     Dosage: 75 UG, DAILY (1/D)
  3. INSULIN [Concomitant]
     Route: 058

REACTIONS (1)
  - GASTRIC OPERATION [None]
